FAERS Safety Report 8449461-1 (Version None)
Quarter: 2012Q2

REPORT INFORMATION
  Report Type: 
  Country: None (occurrence: None)
  Receive Date: 20120619
  Receipt Date: 20120608
  Transmission Date: 20120825
  Serious: Yes (Hospitalization, Other)
  Sender: FDA-Public Use
  Company Number: BE-TEVA-341643ISR

PATIENT
  Age: 66 Year
  Sex: Female

DRUGS (31)
  1. ENTEROL [Concomitant]
     Dates: start: 20120411
  2. MOVIPREP [Concomitant]
     Dates: start: 20120313
  3. MOTILIUM [Concomitant]
     Indication: NAUSEA
     Dates: start: 20120311
  4. POTASSIUM CHLORIDE [Concomitant]
     Indication: HYPOKALAEMIA
     Route: 042
     Dates: start: 20120402, end: 20120404
  5. XYLOCAINE GEL BUCCAL [Concomitant]
     Indication: MUCOSAL INFLAMMATION
     Route: 002
     Dates: start: 20120402, end: 20120407
  6. CISPLATIN [Suspect]
     Dosage: 85 MILLIGRAM;
     Route: 041
     Dates: start: 20120326
  7. BAREXAL [Concomitant]
     Dates: start: 20120411
  8. BICARBONATE BUCCAL [Concomitant]
     Indication: MUCOSAL INFLAMMATION
     Route: 002
     Dates: start: 20120313
  9. PRIMPERAN TAB [Concomitant]
     Indication: NAUSEA
     Dates: start: 20120403
  10. FLUOROURACIL [Suspect]
     Dosage: 4272 MILLIGRAM;
     Route: 041
     Dates: start: 20120326
  11. MS CONTIN [Concomitant]
     Indication: PAIN
     Dates: start: 20120313
  12. SYNGEL [Concomitant]
     Indication: ABDOMINAL PAIN UPPER
     Dates: start: 20120314
  13. OLAMINE (PIROCTONE ETHANOLAMINE) [Concomitant]
     Indication: VITAMIN SUPPLEMENTATION
     Dates: start: 20101208
  14. SOFTENE [Concomitant]
     Indication: CONSTIPATION
     Dates: start: 20120315
  15. ATACAND [Concomitant]
     Dates: start: 20120411
  16. BICARBONATE BUCCAL [Concomitant]
     Route: 002
     Dates: start: 20120411
  17. CISPLATIN [Suspect]
     Indication: METASTATIC GASTRIC CANCER
     Dosage: 116 MILLIGRAM;
     Route: 041
     Dates: start: 20120305, end: 20120305
  18. ATACAND [Concomitant]
     Indication: HYPERTENSION
     Dates: start: 20050525
  19. IMODIUM [Concomitant]
     Indication: DIARRHOEA
     Dates: start: 20120312
  20. EMEND [Concomitant]
     Dates: start: 20120411
  21. NEUROBION [Concomitant]
     Indication: GASTRECTOMY
     Dates: start: 20100330
  22. PRESERVISION (OCUVITE LUTEINE) [Concomitant]
     Indication: VITAMIN SUPPLEMENTATION
     Dates: start: 20101001
  23. FLUOROURACIL [Suspect]
     Indication: METASTATIC GASTRIC CANCER
     Dosage: 5811 MILLIGRAM;
     Route: 041
     Dates: start: 20120305, end: 20120310
  24. ORTHO-GYNEST [Concomitant]
     Indication: OOPHORECTOMY
     Dates: start: 20110307
  25. BAREXAL [Concomitant]
     Indication: DIARRHOEA
     Dates: start: 20120305
  26. ACETAMINOPHEN [Concomitant]
     Indication: HEADACHE
     Dates: start: 20120309
  27. ACETAMINOPHEN [Concomitant]
     Indication: PAIN
     Dates: start: 20120411
  28. MOVIPREP [Concomitant]
     Indication: CONSTIPATION
     Dates: start: 20120313
  29. LITICAN [Concomitant]
     Indication: NAUSEA
     Dates: start: 20120311
  30. PANTOPRAZOLE [Concomitant]
     Dates: start: 20120411
  31. MS DIRECT [Concomitant]
     Indication: PAIN
     Dates: start: 20120313

REACTIONS (2)
  - HYPOKALAEMIA [None]
  - NEUTROPENIA [None]
